FAERS Safety Report 5265969-4 (Version None)
Quarter: 2007Q1

REPORT INFORMATION
  Report Type: 
  Country: None (occurrence: None)
  Receive Date: 20070315
  Receipt Date: 20070312
  Transmission Date: 20070707
  Serious: Yes (Death, Life-Threatening, Hospitalization, Other)
  Sender: FDA-Public Use
  Company Number: PHBS2007JP02405

PATIENT
  Age: 61 Year
  Sex: Male
  Weight: 48 kg

DRUGS (15)
  1. ZOMETA [Suspect]
     Indication: METASTASES TO BONE
     Dosage: 4 MG, UNK
     Route: 042
     Dates: start: 20061114, end: 20070109
  2. CAMPTOSAR [Concomitant]
     Dates: start: 20061127, end: 20061205
  3. CISPLATIN [Concomitant]
     Route: 065
  4. OXYCONTIN [Suspect]
     Indication: CANCER PAIN
     Dosage: 45 MG/D
     Route: 048
     Dates: start: 20061115
  5. RELIFEN [Suspect]
     Indication: CANCER PAIN
     Dosage: 800 MG/D
     Route: 048
     Dates: start: 20061114, end: 20070201
  6. CPT-11 [Suspect]
     Indication: METASTASES TO BONE
     Dosage: 100 MG/D
     Route: 042
     Dates: start: 20061124, end: 20061124
  7. CPT-11 [Suspect]
     Dosage: 50 MG/D
     Route: 042
     Dates: start: 20061208, end: 20061208
  8. CDDP + ETOPOSIDE+CTX+MTX+5-FU+ADR+VCR [Suspect]
     Indication: METASTASES TO BONE
     Dosage: 50 MG/D
     Route: 042
     Dates: start: 20061124, end: 20061208
  9. TS 1 [Suspect]
     Indication: METASTASES TO BONE
     Dosage: 100 MG/D
     Route: 048
     Dates: start: 20060405, end: 20061031
  10. KRESTIN [Suspect]
     Indication: METASTASES TO BONE
     Dosage: 3 G/D
     Route: 048
     Dates: start: 20060726, end: 20061031
  11. DAI-KENCHU-TO [Suspect]
     Indication: CONSTIPATION
     Dosage: 2.5 G/D
     Route: 048
     Dates: start: 20061128, end: 20061220
  12. MUCOSTA [Concomitant]
     Indication: GASTRIC DISORDER
     Dosage: 200 MG/D
     Route: 048
     Dates: start: 20061114, end: 20070201
  13. NOVAMIN [Concomitant]
     Indication: PROPHYLAXIS
     Dosage: 15 MG/D
     Route: 048
     Dates: start: 20061114, end: 20070128
  14. PRIMPERAN INJ [Concomitant]
     Dosage: 15 MG/D
     Route: 048
     Dates: start: 20061115, end: 20070128
  15. MAGLAX [Concomitant]
     Indication: CONSTIPATION
     Route: 048
     Dates: start: 20061114

REACTIONS (15)
  - ALANINE AMINOTRANSFERASE INCREASED [None]
  - ANOREXIA [None]
  - ASPARTATE AMINOTRANSFERASE INCREASED [None]
  - BLOOD ALKALINE PHOSPHATASE INCREASED [None]
  - BLOOD LACTATE DEHYDROGENASE INCREASED [None]
  - COMPUTERISED TOMOGRAM ABNORMAL [None]
  - DYSPNOEA [None]
  - GAMMA-GLUTAMYLTRANSFERASE INCREASED [None]
  - HEPATITIS [None]
  - INTERSTITIAL LUNG DISEASE [None]
  - LIVER DISORDER [None]
  - LOCALISED OEDEMA [None]
  - MALIGNANT PLEURAL EFFUSION [None]
  - PANCYTOPENIA [None]
  - PYREXIA [None]
